FAERS Safety Report 5918855-8 (Version None)
Quarter: 2008Q4

REPORT INFORMATION
  Report Type: 
  Country: None (occurrence: None)
  Receive Date: 20081015
  Receipt Date: 20081002
  Transmission Date: 20090506
  Serious: Yes (Other)
  Sender: FDA-Public Use
  Company Number: US-AMGEN-QUU278388

PATIENT
  Sex: Male

DRUGS (4)
  1. ENBREL [Suspect]
     Indication: PSORIASIS
     Route: 058
     Dates: start: 20060801
  2. COUMADIN [Concomitant]
  3. TENORMIN [Concomitant]
  4. FOLIC ACID [Concomitant]

REACTIONS (1)
  - POLYCYTHAEMIA [None]
